FAERS Safety Report 8530520-X (Version None)
Quarter: 2012Q3

REPORT INFORMATION
  Report Type: 
  Country: None (occurrence: None)
  Receive Date: 20120723
  Receipt Date: 20120712
  Transmission Date: 20120928
  Serious: Yes (Life-Threatening)
  Sender: FDA-Public Use
  Company Number: JP-PFIZER INC-2012087951

PATIENT
  Age: 62 Year
  Sex: Male
  Weight: 61 kg

DRUGS (18)
  1. ERBITUX [Suspect]
     Dosage: 400 MG, 1X/DAY
     Route: 041
     Dates: start: 20120124, end: 20120124
  2. ERBITUX [Suspect]
     Dosage: 400 MG, 1X/DAY
     Route: 041
     Dates: start: 20120221, end: 20120221
  3. FAMOTIDINE [Concomitant]
     Dosage: UNK
     Dates: start: 20120117, end: 20120221
  4. ERBITUX [Suspect]
     Indication: COLON CANCER
     Dosage: 600 MG, 1X/DAY
     Route: 041
     Dates: start: 20120117, end: 20120117
  5. GLOBULIN N [Concomitant]
     Dosage: UNK
     Dates: start: 20120229, end: 20120304
  6. ESOMEPRAZOLE MAGNESIUM [Concomitant]
     Indication: HELICOBACTER INFECTION
     Dosage: UNK
     Dates: start: 20120302, end: 20120308
  7. PLATELETS, HUMAN BLOOD [Concomitant]
     Dosage: UNK
     Dates: start: 20120228, end: 20120228
  8. IRINOTECAN HYDROCHLORIDE [Suspect]
     Dosage: 200 MG, 1X/DAY
     Route: 041
     Dates: start: 20120214, end: 20120214
  9. ERBITUX [Suspect]
     Dosage: 400 MG, 1X/DAY
     Route: 041
     Dates: start: 20120207, end: 20120207
  10. DECADRON [Concomitant]
     Dosage: UNK
     Dates: start: 20120117, end: 20120221
  11. CLARITHROMYCIN [Concomitant]
     Indication: HELICOBACTER INFECTION
     Dosage: UNK
     Dates: start: 20120302, end: 20120308
  12. IRINOTECAN HYDROCHLORIDE [Suspect]
     Dosage: 200 MG, 1X/DAY
     Route: 041
     Dates: start: 20120131, end: 20120131
  13. AMOXICILLIN [Concomitant]
     Dosage: UNK
     Dates: start: 20120302, end: 20120308
  14. PROMACTA [Concomitant]
     Dosage: UNK
     Dates: start: 20120321
  15. IRINOTECAN HYDROCHLORIDE [Suspect]
     Indication: COLON CANCER
     Dosage: 200 MG, 1X/DAY
     Route: 041
     Dates: start: 20120117, end: 20120117
  16. ERBITUX [Suspect]
     Dosage: 400 MG, 1X/DAY
     Route: 041
     Dates: start: 20120131, end: 20120131
  17. ERBITUX [Suspect]
     Dosage: 400 MG, 1X/DAY
     Route: 041
     Dates: start: 20120214, end: 20120214
  18. PREDNISOLONE [Concomitant]
     Dosage: UNK
     Route: 048
     Dates: start: 20120306, end: 20120321

REACTIONS (3)
  - NEUTROPENIA [None]
  - IDIOPATHIC THROMBOCYTOPENIC PURPURA [None]
  - LEUKOPENIA [None]
